FAERS Safety Report 15728113 (Version 2)
Quarter: 2019Q4

REPORT INFORMATION
  Report Type: Spontaneous
  Country: US (occurrence: US)
  Receive Date: 20181217
  Receipt Date: 20191111
  Transmission Date: 20200122
  Serious: Yes (Hospitalization, Other)
  Sender: FDA-Public Use
  Company Number: US-ACTELION-A-CH2018-183144

PATIENT

DRUGS (1)
  1. VELETRI [Suspect]
     Active Substance: EPOPROSTENOL
     Indication: ACUTE RESPIRATORY DISTRESS SYNDROME
     Dosage: 0.05 ?G/KG, PER MIN
     Route: 042

REACTIONS (9)
  - Packed red blood cell transfusion [Unknown]
  - Product use issue [Unknown]
  - Thrombocytopenia [Unknown]
  - Dialysis [Unknown]
  - Tachycardia [Unknown]
  - Platelet transfusion [Unknown]
  - Hypotension [Unknown]
  - Hypoxia [Unknown]
  - Vasopressive therapy [Unknown]
